FAERS Safety Report 8136127-0 (Version None)
Quarter: 2012Q1

REPORT INFORMATION
  Report Type: 
  Country: None (occurrence: None)
  Receive Date: 20120214
  Receipt Date: 20111219
  Transmission Date: 20120608
  Serious: No
  Sender: FDA-Public Use
  Company Number: US-COVIDIEN/TYCO HEALTHCARE/MALLINCKRODT-T201102316

PATIENT
  Sex: Female
  Weight: 58.05 kg

DRUGS (11)
  1. FENTANYL-100 [Suspect]
     Indication: PAIN
     Dosage: 75 UG/HR, ONE PATCH Q 3 DAYS
     Route: 062
     Dates: start: 20110101, end: 20111101
  2. STOOL SOFTENER [Concomitant]
     Indication: CONSTIPATION
     Dosage: UNK, QD
  3. LISINOPRIL [Concomitant]
     Dosage: 10 UNK, QD
  4. PLAVIX [Concomitant]
     Indication: ANTICOAGULANT THERAPY
     Dosage: 75 UNK, QD
  5. ASPIRIN [Concomitant]
     Indication: ANTICOAGULANT THERAPY
     Dosage: 81 MG, QD
  6. KLONOPIN [Concomitant]
     Indication: ANXIETY
     Dosage: 2 MG, BID
  7. NORCO [Concomitant]
     Indication: BREAKTHROUGH PAIN
     Dosage: 750 UNK, UNK
  8. FENTANYL-100 [Suspect]
     Indication: ARTHRALGIA
     Dosage: 75 UG/HR, ONE PATCH Q 3 DAYS
     Dates: start: 20110101
  9. SOMA [Concomitant]
     Indication: ARTHRITIS
     Dosage: 325 UNK, UNK
  10. ZORCO [Concomitant]
     Dosage: 80 UNK, QD
  11. MORPHINE [Concomitant]
     Dosage: UNK, TID
     Dates: end: 20110101

REACTIONS (7)
  - APPLICATION SITE BURN [None]
  - APPLICATION SITE EROSION [None]
  - APPLICATION SITE SCAB [None]
  - NAUSEA [None]
  - CHEST PAIN [None]
  - HEADACHE [None]
  - DRUG EFFECT DECREASED [None]
